FAERS Safety Report 15049542 (Version 1)
Quarter: 2018Q2

REPORT INFORMATION
  Report Type: Spontaneous
  Country: CA (occurrence: CA)
  Receive Date: 20180622
  Receipt Date: 20180622
  Transmission Date: 20180711
  Serious: Yes (Disabling)
  Sender: FDA-Public Use
  Company Number: CA-TEVA-2018-CA-908589

PATIENT
  Age: 17 Year
  Sex: Male
  Weight: 54.48 kg

DRUGS (3)
  1. FLUOXETINE [Suspect]
     Active Substance: FLUOXETINE HYDROCHLORIDE
     Indication: AUTISM SPECTRUM DISORDER
     Route: 048
  2. ZYPREXA [Concomitant]
     Active Substance: OLANZAPINE
  3. FLUOXETINE [Suspect]
     Active Substance: FLUOXETINE HYDROCHLORIDE
     Indication: ANXIETY

REACTIONS (3)
  - Performance status decreased [Recovered/Resolved]
  - Agitation [Recovered/Resolved]
  - Pruritus [Recovered/Resolved]
